FAERS Safety Report 6643119-7 (Version None)
Quarter: 2010Q1

REPORT INFORMATION
  Report Type: 
  Country: None (occurrence: None)
  Receive Date: 20100319
  Receipt Date: 20100308
  Transmission Date: 20100710
  Serious: Yes (Hospitalization, Other)
  Sender: FDA-Public Use
  Company Number: PHHY2008FR22929

PATIENT
  Sex: Female

DRUGS (12)
  1. CGP 57148B T35717+ [Suspect]
     Indication: CHRONIC MYELOID LEUKAEMIA
     Dosage: 400 MG DAILY
  2. KARDEGIC [Concomitant]
     Dosage: 75 MG, QD
  3. FLECAINIDE ACETATE [Concomitant]
     Dosage: 100 MG, QD
  4. VASTEN [Concomitant]
     Dosage: 10 MG, QD
  5. SEROPRAM [Concomitant]
     Dosage: 20 MG, QD
  6. IMOVANE [Concomitant]
     Dosage: 2 DF, DAILY
  7. TARDYFERON [Concomitant]
     Dosage: 80 MG, QD
  8. ACETAMINOPHEN W/ PROPOXYPHENE HCL [Concomitant]
     Dosage: 6 DF, DAILY
  9. ATENOL [Concomitant]
     Dosage: 25 MG, QD
  10. CACIT D3 [Concomitant]
     Dosage: 1 DF, DAILY
  11. HYDROCORTISONE [Concomitant]
     Dosage: 10 MG 3 DF, DAILY
  12. FLUDROCORTISONE [Concomitant]
     Dosage: 75 MICROGRAMS DAILY

REACTIONS (20)
  - ANAEMIA MACROCYTIC [None]
  - ASTHENIA [None]
  - BLOOD PRESSURE DECREASED [None]
  - CARDIOMEGALY [None]
  - CHILLS [None]
  - CONFUSIONAL STATE [None]
  - CREPITATIONS [None]
  - CULTURE URINE POSITIVE [None]
  - DIARRHOEA [None]
  - ESCHERICHIA URINARY TRACT INFECTION [None]
  - FAECES DISCOLOURED [None]
  - FLATULENCE [None]
  - GENERAL PHYSICAL HEALTH DETERIORATION [None]
  - HEART SOUNDS ABNORMAL [None]
  - INFLAMMATION [None]
  - MALAISE [None]
  - PYELONEPHRITIS ACUTE [None]
  - PYREXIA [None]
  - TREMOR [None]
  - VITAMIN B12 DEFICIENCY [None]
